FAERS Safety Report 6576857-5 (Version None)
Quarter: 2010Q1

REPORT INFORMATION
  Report Type: 
  Country: None (occurrence: None)
  Receive Date: 20100210
  Receipt Date: 20100201
  Transmission Date: 20100710
  Serious: Yes (Other)
  Sender: FDA-Public Use
  Company Number: A0800776A

PATIENT
  Age: 52 Year
  Sex: Male

DRUGS (1)
  1. PROMACTA [Suspect]
     Indication: IDIOPATHIC THROMBOCYTOPENIC PURPURA
     Dosage: 50MG PER DAY
     Route: 048
     Dates: end: 20090326

REACTIONS (4)
  - ARTHRALGIA [None]
  - BONE PAIN [None]
  - LIVER DISORDER [None]
  - MYALGIA [None]
